FAERS Safety Report 13288957 (Version 1)
Quarter: 2017Q1

REPORT INFORMATION
  Report Type: Spontaneous
  Country: US (occurrence: US)
  Receive Date: 20170302
  Receipt Date: 20170302
  Transmission Date: 20170428
  Serious: Yes (Hospitalization)
  Sender: FDA-Public Use
  Company Number: US-ROCHE-1900937

PATIENT
  Age: 60 Year
  Sex: Male

DRUGS (2)
  1. OXALIPLATIN. [Concomitant]
     Active Substance: OXALIPLATIN
     Indication: COLORECTAL CANCER METASTATIC
     Route: 065
  2. CAPECITABINE. [Suspect]
     Active Substance: CAPECITABINE
     Indication: COLORECTAL CANCER METASTATIC
     Dosage: 2220 MG
     Route: 048

REACTIONS (3)
  - Abdominal pain upper [Recovered/Resolved]
  - Electrocardiogram ST segment elevation [Recovered/Resolved]
  - Atrial fibrillation [Recovered/Resolved]
